FAERS Safety Report 9373544 (Version 1)
Quarter: 2013Q2

REPORT INFORMATION
  Report Type: Spontaneous
  Country: CO (occurrence: CO)
  Receive Date: 20130627
  Receipt Date: 20130627
  Transmission Date: 20140414
  Serious: Yes (Death)
  Sender: FDA-Public Use
  Company Number: CO-ASTRAZENECA-2013SE48371

PATIENT
  Age: 3 Month
  Sex: Female
  Weight: 2.1 kg

DRUGS (2)
  1. SYNAGIS [Suspect]
     Indication: BRONCHOPULMONARY DYSPLASIA
     Route: 058
     Dates: start: 20130311, end: 20130509
  2. SYNAGIS [Suspect]
     Indication: BRONCHOPULMONARY DYSPLASIA
     Route: 030

REACTIONS (1)
  - Cardio-respiratory arrest [Fatal]
